FAERS Safety Report 9459161 (Version 2)
Quarter: 2013Q3

REPORT INFORMATION
  Report Type: Spontaneous
  Country: US (occurrence: US)
  Receive Date: 20130814
  Receipt Date: 20130823
  Transmission Date: 20140515
  Serious: Yes (Disabling, Other)
  Sender: FDA-Public Use
  Company Number: US-GILEAD-2013-0080486

PATIENT
  Age: 70 Year
  Sex: Male

DRUGS (14)
  1. LETAIRIS [Suspect]
     Indication: PULMONARY ARTERIAL HYPERTENSION
     Dosage: 5 MG, QD
     Dates: start: 201306, end: 201307
  2. ADVAIR [Concomitant]
     Dosage: UNK
     Dates: start: 20120320
  3. CENTRUM SILVER                     /02363801/ [Concomitant]
     Dosage: UNK
     Dates: start: 20120830
  4. DONEPEZIL HCL [Concomitant]
     Dosage: UNK
     Dates: start: 20110912
  5. IPRATROPIUM/ALBUTEROL [Concomitant]
     Dosage: UNK
     Dates: start: 20120315
  6. LEVOTHYROXINE SODIUM [Concomitant]
     Dosage: UNK
     Dates: start: 20070320
  7. MELATONIN [Concomitant]
     Dosage: UNK
     Dates: start: 20120410
  8. OMEPRAZOLE [Concomitant]
     Dosage: UNK
     Dates: start: 20101220
  9. PRAMIPEXOLE DIHYDROCHLORIDE [Concomitant]
     Dosage: UNK
     Dates: start: 20130327
  10. PROVENTIL HFA                      /00139501/ [Concomitant]
     Dosage: UNK
     Dates: start: 20111011
  11. SPIRIVA HANDIHALER [Concomitant]
     Dosage: UNK
     Dates: start: 20071014
  12. TAMSULOSIN [Concomitant]
     Dosage: UNK
     Dates: start: 20130620
  13. TORSEMIDE [Concomitant]
     Dosage: 10 MG, QD
     Dates: start: 20130124
  14. TRAZODONE [Concomitant]
     Dosage: UNK
     Dates: start: 20130730

REACTIONS (5)
  - General physical health deterioration [Unknown]
  - Dyspnoea [Recovering/Resolving]
  - Cardiac failure congestive [Recovering/Resolving]
  - Drug ineffective [Unknown]
  - Oedema [Recovering/Resolving]
